FAERS Safety Report 5849116-3 (Version None)
Quarter: 2008Q3

REPORT INFORMATION
  Report Type: 
  Country: None (occurrence: None)
  Receive Date: 20080815
  Receipt Date: 20080724
  Transmission Date: 20090109
  Serious: Yes (Hospitalization)
  Sender: FDA-Public Use
  Company Number: 8035526

PATIENT
  Age: 43 Year
  Sex: Female
  Weight: 80 kg

DRUGS (3)
  1. KEPPRA [Suspect]
     Indication: EPILEPSY
     Dosage: 1000 MG 2/D PO
     Route: 048
  2. CARBAMAZEPINE [Concomitant]
  3. VALPROATE SODIUM [Concomitant]

REACTIONS (2)
  - FATIGUE [None]
  - MANIA [None]
